FAERS Safety Report 15348274 (Version 4)
Quarter: 2018Q4

REPORT INFORMATION
  Report Type: Report from Study
  Country: CA (occurrence: CA)
  Receive Date: 20180904
  Receipt Date: 20181030
  Transmission Date: 20190204
  Serious: Yes (Hospitalization, Other)
  Sender: FDA-Public Use
  Company Number: CA-GLAXOSMITHKLINE-CA2018GSK157802

PATIENT
  Sex: Male

DRUGS (3)
  1. MEPOLIZUMAB [Suspect]
     Active Substance: MEPOLIZUMAB
     Dosage: 100 UNK, UNK, MONTHLY
     Route: 042
  2. MEPOLIZUMAB [Suspect]
     Active Substance: MEPOLIZUMAB
     Indication: ASTHMA
     Dosage: 100 MG, Z (MONTHLY)
     Route: 042
  3. MEPOLIZUMAB [Suspect]
     Active Substance: MEPOLIZUMAB
     Dosage: 100 MG, Z (MONTHLY)
     Route: 042

REACTIONS (5)
  - Rectal haemorrhage [Recovered/Resolved]
  - Gastrointestinal inflammation [Unknown]
  - Diarrhoea [Unknown]
  - Haemorrhoids [Unknown]
  - Pain [Unknown]
